FAERS Safety Report 9354862 (Version 1)
Quarter: 2013Q2

REPORT INFORMATION
  Report Type: Spontaneous
  Country: CA (occurrence: CA)
  Receive Date: 20130619
  Receipt Date: 20130619
  Transmission Date: 20140414
  Serious: Yes (Disabling)
  Sender: FDA-Public Use
  Company Number: CA-ROCHE-1237057

PATIENT
  Age: 18 Year
  Sex: Male
  Weight: 70.37 kg

DRUGS (1)
  1. ACCUTANE [Suspect]
     Indication: PRODUCT USED FOR UNKNOWN INDICATION
     Route: 048

REACTIONS (2)
  - Corneal disorder [Not Recovered/Not Resolved]
  - Keratoconus [Not Recovered/Not Resolved]
